FAERS Safety Report 25097769 (Version 4)
Quarter: 2025Q3

REPORT INFORMATION
  Report Type: Report from Study
  Country: US (occurrence: US)
  Receive Date: 20250320
  Receipt Date: 20250806
  Transmission Date: 20251020
  Serious: Yes (Other)
  Sender: TAKEDA
  Company Number: US-TAKEDA-2025TUS027538

PATIENT
  Sex: Female

DRUGS (2)
  1. HUMAN IMMUNOGLOBULIN G [Suspect]
     Active Substance: HUMAN IMMUNOGLOBULIN G
     Indication: Primary immunodeficiency syndrome
     Dosage: UNK, 1/WEEK
  2. HUMAN IMMUNOGLOBULIN G [Suspect]
     Active Substance: HUMAN IMMUNOGLOBULIN G
     Indication: Immunodeficiency common variable

REACTIONS (13)
  - Nephrolithiasis [Unknown]
  - Impaired gastric emptying [Unknown]
  - Infection [Not Recovered/Not Resolved]
  - Orthostatic hypertension [Unknown]
  - Osteoporosis [Unknown]
  - Illness [Unknown]
  - Heart rate abnormal [Unknown]
  - Emotional distress [Unknown]
  - Palpitations [Unknown]
  - Chest pain [Unknown]
  - Blood pressure increased [Unknown]
  - Dizziness [Unknown]
  - Headache [Unknown]
